FAERS Safety Report 5585804-4 (Version None)
Quarter: 2008Q1

REPORT INFORMATION
  Report Type: 
  Country: None (occurrence: None)
  Receive Date: 20080109
  Receipt Date: 20070928
  Transmission Date: 20080703
  Serious: Yes (Other)
  Sender: FDA-Public Use
  Company Number: GB-RANBAXY-2007RR-10436

PATIENT

DRUGS (8)
  1. FLUOXETINE 20MG CAPSULES [Suspect]
     Indication: SYSTEMIC SCLEROSIS
     Route: 065
  2. CLOPIDOGREL [Concomitant]
     Indication: SYSTEMIC SCLEROSIS
     Route: 065
  3. ILOPROST [Concomitant]
     Indication: SYSTEMIC SCLEROSIS
     Route: 065
  4. LANSOPRAZOLE [Concomitant]
     Indication: SYSTEMIC SCLEROSIS
     Route: 065
  5. LOSARTAN POTASSIUM [Concomitant]
     Indication: SYSTEMIC SCLEROSIS
     Route: 065
  6. NIFEDIPINE [Concomitant]
     Indication: SYSTEMIC SCLEROSIS
     Route: 065
  7. CYCLOPHOSPHAMIDE [Concomitant]
     Indication: ISCHAEMIA
  8. METHYLPREDNISOLONE [Concomitant]
     Indication: ISCHAEMIA

REACTIONS (3)
  - ANAEMIA [None]
  - GANGRENE [None]
  - SYSTEMIC SCLEROSIS [None]
